FAERS Safety Report 4816654-1 (Version None)
Quarter: 2005Q4

REPORT INFORMATION
  Report Type: 
  Country: None (occurrence: None)
  Receive Date: 20051028
  Receipt Date: 20051021
  Transmission Date: 20060501
  Serious: Yes (Hospitalization)
  Sender: FDA-Public Use
  Company Number: 163-20785-05100306

PATIENT
  Age: 89 Year
  Sex: Female

DRUGS (1)
  1. THALOMID [Suspect]
     Indication: LEUKAEMIA
     Dosage: 50 MG, DAILY, ORAL
     Route: 048
     Dates: start: 20050215

REACTIONS (4)
  - ASTHENIA [None]
  - CARDIAC FAILURE CONGESTIVE [None]
  - FALL [None]
  - MYELODYSPLASTIC SYNDROME [None]
